FAERS Safety Report 13511916 (Version 5)
Quarter: 2017Q3

REPORT INFORMATION
  Report Type: Report from Study
  Country: US (occurrence: US)
  Receive Date: 20170504
  Receipt Date: 20170814
  Transmission Date: 20171127
  Serious: Yes (Hospitalization)
  Sender: FDA-Public Use
  Company Number: US-PFIZER INC-2017155040

PATIENT
  Age: 36 Year
  Sex: Female

DRUGS (1)
  1. IBRANCE [Suspect]
     Active Substance: PALBOCICLIB
     Indication: BREAST CANCER
     Dosage: 125 MG, CYCLIC (AT ^125^, 3 WEEKS ON/1 WEEK OFF)(DAILY; 3 WEEKS ON/1 WEEK OFF)
     Route: 048
     Dates: start: 20170201

REACTIONS (13)
  - Rhinitis allergic [Unknown]
  - Fatigue [Recovered/Resolved]
  - Headache [Recovered/Resolved]
  - Depression [Not Recovered/Not Resolved]
  - Drug dose omission [Unknown]
  - Migraine [Not Recovered/Not Resolved]
  - Stomatitis [Unknown]
  - Pruritus [Unknown]
  - Aphonia [Unknown]
  - Nausea [Recovered/Resolved]
  - Nasal congestion [Unknown]
  - Diarrhoea [Recovered/Resolved]
  - Vomiting [Recovered/Resolved]
